FAERS Safety Report 7150375-8 (Version None)
Quarter: 2010Q4

REPORT INFORMATION
  Report Type: 
  Country: None (occurrence: None)
  Receive Date: 20101123
  Receipt Date: 20101108
  Transmission Date: 20110411
  Serious: Yes (Other)
  Sender: FDA-Public Use
  Company Number: 011830

PATIENT
  Age: 6 Year
  Sex: Male

DRUGS (5)
  1. BUSULFEX [Suspect]
     Indication: BONE MARROW CONDITIONING REGIMEN
     Dosage: 0.8 MG/KG, Q6HR
  2. FLUDARABINE PHOSPHATE [Concomitant]
  3. ATG (ANTILYMPHOCYTE IMMUNOGLOBULIN (HORSE)) [Concomitant]
  4. CYCLOSPORINE [Concomitant]
  5. MYCOPHENOLATE MOFETIL [Concomitant]

REACTIONS (2)
  - HAEMOGLOBINURIA [None]
  - HEADACHE [None]
